FAERS Safety Report 4548261-2 (Version None)
Quarter: 2005Q1

REPORT INFORMATION
  Report Type: 
  Country: None (occurrence: None)
  Receive Date: 20050110
  Receipt Date: 20041227
  Transmission Date: 20050727
  Serious: Yes (Death)
  Sender: FDA-Public Use
  Company Number: JP-JNJFOC-20041206703

PATIENT
  Age: 52 Year
  Sex: Male

DRUGS (10)
  1. LEVOFLOXACIN [Suspect]
     Indication: PNEUMONIA
     Route: 042
     Dates: start: 20041215, end: 20041215
  2. ACETAMINOPHEN [Concomitant]
     Indication: PAIN
     Route: 042
     Dates: start: 20041208, end: 20041215
  3. ATENOLOL [Concomitant]
     Indication: HYPERTENSION
     Route: 049
     Dates: end: 20041215
  4. TAMSULOSINE [Concomitant]
     Indication: PROSTATISM
     Route: 049
     Dates: end: 20041215
  5. PANTOPRAZOLE SODIUM [Concomitant]
     Indication: GASTRODUODENAL ULCER
     Route: 049
     Dates: end: 20041215
  6. ENOXAPARINE [Concomitant]
     Indication: THROMBOSIS PROPHYLAXIS
     Route: 058
     Dates: start: 20041208, end: 20041215
  7. MORPHINE [Concomitant]
     Indication: PAIN
     Route: 049
     Dates: start: 20041211, end: 20041215
  8. PIRITRAMIDE [Concomitant]
     Indication: PAIN
     Route: 030
     Dates: start: 20041211, end: 20041215
  9. PIPERACILLINE [Concomitant]
     Route: 042
     Dates: start: 20041214, end: 20041215
  10. PIPERACILLINE [Concomitant]
     Indication: PNEUMONIA
     Route: 042
     Dates: start: 20041214, end: 20041215

REACTIONS (5)
  - ACUTE RESPIRATORY DISTRESS SYNDROME [None]
  - HYPOTENSION [None]
  - HYPOXIA [None]
  - PNEUMONIA [None]
  - RESPIRATORY DISTRESS [None]
